FAERS Safety Report 14800537 (Version 1)
Quarter: 2018Q2

REPORT INFORMATION
  Report Type: Spontaneous
  Country: US (occurrence: US)
  Receive Date: 20180424
  Receipt Date: 20180424
  Transmission Date: 20180711
  Serious: Yes (Other)
  Sender: FDA-Public Use
  Company Number: US-BAYER-2018-071621

PATIENT
  Age: 28 Year
  Sex: Female

DRUGS (2)
  1. MIRENA [Suspect]
     Active Substance: LEVONORGESTREL
     Indication: CONTRACEPTION
     Dosage: 20 MCG/24HR, CONT
     Route: 015
     Dates: start: 20180209
  2. MIRENA [Suspect]
     Active Substance: LEVONORGESTREL

REACTIONS (7)
  - Medical device monitoring error [None]
  - Device issue [None]
  - Haemorrhage in pregnancy [None]
  - Contraindicated device used [None]
  - Device difficult to use [None]
  - Pelvic pain [None]
  - Pregnancy with contraceptive device [None]

NARRATIVE: CASE EVENT DATE: 201801
